FAERS Safety Report 8117971-2 (Version None)
Quarter: 2012Q1

REPORT INFORMATION
  Report Type: 
  Country: None (occurrence: None)
  Receive Date: 20120201
  Receipt Date: 20120120
  Transmission Date: 20120608
  Serious: Yes (Hospitalization)
  Sender: FDA-Public Use
  Company Number: TPG2012A00108

PATIENT
  Age: 62 Year
  Sex: Male

DRUGS (7)
  1. VASOCORD (ISOSORBIDE MONONITRATE) [Concomitant]
  2. LANTUS [Concomitant]
  3. BILOL (BISOPROLOL FUMARATE) [Concomitant]
  4. ASPIRIN [Concomitant]
  5. ACTOS [Suspect]
     Indication: PRODUCT USED FOR UNKNOWN INDICATION
     Dosage: 30 MG (30 MG, 1 IN 1 D)
     Route: 048
     Dates: start: 20100501
  6. GLUCOVANCE [Concomitant]
  7. SIMVASTATIN [Concomitant]

REACTIONS (2)
  - HAEMATURIA [None]
  - BLADDER CANCER [None]
